FAERS Safety Report 8055418-5 (Version None)
Quarter: 2011Q4

REPORT INFORMATION
  Report Type: 
  Country: None (occurrence: None)
  Receive Date: 20111213
  Receipt Date: 20110926
  Transmission Date: 20120403
  Serious: Yes (Other)
  Sender: FDA-Public Use
  Company Number: 2011SP045546

PATIENT
  Age: 42 Year
  Sex: Male

DRUGS (1)
  1. SAPHRIS [Suspect]
     Indication: SCHIZOPHRENIA
     Dosage: 5 MG;HS ; 15 MG;HS; 10 MG;BID
     Dates: start: 20110419

REACTIONS (10)
  - DROOLING [None]
  - WRONG TECHNIQUE IN DRUG USAGE PROCESS [None]
  - TREMOR [None]
  - SWOLLEN TONGUE [None]
  - SALIVARY HYPERSECRETION [None]
  - GASTROINTESTINAL MOTILITY DISORDER [None]
  - DYSPHAGIA [None]
  - SPEECH DISORDER [None]
  - UNDERDOSE [None]
  - INAPPROPRIATE SCHEDULE OF DRUG ADMINISTRATION [None]
